FAERS Safety Report 21132559 (Version 4)
Quarter: 2022Q3

REPORT INFORMATION
  Report Type: Report from Study
  Country: AR (occurrence: AR)
  Receive Date: 20220726
  Receipt Date: 20220808
  Transmission Date: 20221027
  Serious: Yes (Hospitalization)
  Sender: FDA-Public Use
  Company Number: AR-NOVARTISPH-NVSC2022AR104423

PATIENT
  Age: 67 Year
  Sex: Male

DRUGS (2)
  1. COSENTYX [Suspect]
     Active Substance: SECUKINUMAB
     Indication: Psoriatic arthropathy
     Dosage: 150 MG, QMO
     Route: 058
     Dates: start: 20220413
  2. COSENTYX [Suspect]
     Active Substance: SECUKINUMAB
     Dosage: 300 MG, QMO
     Route: 065

REACTIONS (7)
  - Localised infection [Unknown]
  - Swelling [Unknown]
  - Movement disorder [Unknown]
  - Pain [Unknown]
  - Arthralgia [Not Recovered/Not Resolved]
  - Blood glucose increased [Unknown]
  - Product supply issue [Unknown]

NARRATIVE: CASE EVENT DATE: 20220429
